FAERS Safety Report 17221824 (Version 1)
Quarter: 2020Q1

REPORT INFORMATION
  Report Type: Spontaneous
  Country: CA (occurrence: CA)
  Receive Date: 20200101
  Receipt Date: 20200101
  Transmission Date: 20200409
  Serious: Yes (Hospitalization)
  Sender: FDA-Public Use
  Company Number: CA-ROCHE-2508131

PATIENT
  Age: 57 Year
  Sex: Female

DRUGS (7)
  1. XOLAIR [Suspect]
     Active Substance: OMALIZUMAB
     Indication: CHRONIC SPONTANEOUS URTICARIA
     Route: 058
  2. REACTINE [CETIRIZINE HYDROCHLORIDE] [Concomitant]
     Active Substance: CETIRIZINE HYDROCHLORIDE
     Route: 065
  3. MORPHINE [Suspect]
     Active Substance: MORPHINE
     Indication: ABDOMINAL PAIN
     Route: 065
  4. XOLAIR [Suspect]
     Active Substance: OMALIZUMAB
     Dosage: 300 MG
     Route: 058
  5. XOLAIR [Suspect]
     Active Substance: OMALIZUMAB
     Route: 058
  6. XOLAIR [Suspect]
     Active Substance: OMALIZUMAB
     Dosage: 300 MG
     Route: 058
  7. XOLAIR [Suspect]
     Active Substance: OMALIZUMAB
     Route: 058

REACTIONS (17)
  - Chronic spontaneous urticaria [Recovering/Resolving]
  - Vomiting [Recovering/Resolving]
  - Abdominal distension [Recovering/Resolving]
  - Hyperhidrosis [Recovering/Resolving]
  - Urticaria [Recovering/Resolving]
  - Weight decreased [Recovering/Resolving]
  - Rash [Recovering/Resolving]
  - Type 1 diabetes mellitus [Recovering/Resolving]
  - Cough [Recovering/Resolving]
  - Inflammation [Recovering/Resolving]
  - Pruritus [Recovering/Resolving]
  - Rhinorrhoea [Recovering/Resolving]
  - Vitamin B12 deficiency [Recovering/Resolving]
  - Abdominal pain [Recovering/Resolving]
  - Gastroenteritis viral [Recovering/Resolving]
  - Bile duct obstruction [Recovering/Resolving]
  - Heart rate increased [Recovering/Resolving]
